FAERS Safety Report 16819609 (Version 1)
Quarter: 2019Q3

REPORT INFORMATION
  Report Type: Spontaneous
  Country: FR (occurrence: FR)
  Receive Date: 20190917
  Receipt Date: 20190917
  Transmission Date: 20191005
  Serious: Yes (Hospitalization, Other)
  Sender: FDA-Public Use
  Company Number: FR-GILEAD-2019-0428575

PATIENT
  Sex: Male

DRUGS (1)
  1. AXICABTAGENE CILOLEUCEL [Suspect]
     Active Substance: AXICABTAGENE CILOLEUCEL
     Indication: DIFFUSE LARGE B-CELL LYMPHOMA
     Dosage: UNK
     Route: 065
     Dates: start: 20190423, end: 20190423

REACTIONS (10)
  - Clostridium colitis [Recovering/Resolving]
  - Lymphocyte count decreased [Recovering/Resolving]
  - Immunosuppression [Recovering/Resolving]
  - Cytomegalovirus infection [Recovering/Resolving]
  - Septic shock [Recovering/Resolving]
  - Microsporidia infection [Recovering/Resolving]
  - Skin lesion [Recovering/Resolving]
  - Bronchopulmonary aspergillosis [Recovering/Resolving]
  - Diarrhoea [Recovering/Resolving]
  - Hypogammaglobulinaemia [Recovering/Resolving]

NARRATIVE: CASE EVENT DATE: 201907
